FAERS Safety Report 5782832-0 (Version None)
Quarter: 2008Q2

REPORT INFORMATION
  Report Type: 
  Country: None (occurrence: None)
  Receive Date: 20080624
  Receipt Date: 20080618
  Transmission Date: 20081010
  Serious: Yes (Hospitalization, Other)
  Sender: FDA-Public Use
  Company Number: EG-BAYER-200820348GPV

PATIENT
  Age: 63 Year
  Sex: Male
  Weight: 58 kg

DRUGS (7)
  1. NEXAVAR [Suspect]
     Indication: HEPATIC NEOPLASM MALIGNANT
     Dosage: TOTAL DAILY DOSE: 800 MG  UNIT DOSE: 200 MG
     Route: 048
     Dates: start: 20080505, end: 20080515
  2. VITAMIN K TAB [Concomitant]
     Indication: SUPPLEMENTATION THERAPY
     Dosage: TOTAL DAILY DOSE: 30 MG
     Route: 048
     Dates: start: 20030101
  3. INDERAL [Concomitant]
     Indication: PORTAL HYPERTENSION
     Dosage: TOTAL DAILY DOSE: 20 MG
     Route: 048
     Dates: start: 20030101
  4. ALDACTONE [Concomitant]
     Indication: ASCITES
     Dosage: TOTAL DAILY DOSE: 100 MG
     Route: 048
     Dates: start: 20070101
  5. LIVER ALBUMIN PLUS [Concomitant]
     Indication: SUPPLEMENTATION THERAPY
     Route: 065
     Dates: start: 20030101
  6. BURINEX [Concomitant]
     Indication: ASCITES
     Dosage: TOTAL DAILY DOSE: 1 MG
     Route: 048
     Dates: start: 20070101
  7. HUMALIN INSULIN [Concomitant]
     Indication: DIABETES MELLITUS
     Dosage: TOTAL DAILY DOSE: 30 IU
     Route: 058
     Dates: start: 20030101

REACTIONS (8)
  - BALANCE DISORDER [None]
  - DEHYDRATION [None]
  - DIARRHOEA [None]
  - DYSPHONIA [None]
  - ENCEPHALOPATHY [None]
  - FATIGUE [None]
  - LOSS OF CONSCIOUSNESS [None]
  - RENAL FAILURE [None]
